FAERS Safety Report 12234546 (Version 1)
Quarter: 2016Q2

REPORT INFORMATION
  Report Type: Spontaneous
  Country: US (occurrence: None)
  Receive Date: 20160401
  Receipt Date: 20160401
  Transmission Date: 20160815
  Serious: No
  Sender: FDA-Public Use
  Company Number: None

PATIENT
  Age: 58 Year
  Sex: Male

DRUGS (2)
  1. RIVAVIRIN [Suspect]
     Active Substance: RIBAVIRIN
     Indication: CHRONIC HEPATITIS C
     Route: 048
     Dates: start: 20160205, end: 20160305
  2. VIEKIRA PAK [Suspect]
     Active Substance: DASABUVIR\OMBITASVIR\PARITAPREVIR\RITONAVIR
     Indication: CHRONIC HEPATITIS C
     Dosage: PER PKG INSTRUCTIONS DAILY PO
     Route: 048
     Dates: start: 20160205, end: 20160305

REACTIONS (5)
  - Stomatitis [None]
  - Headache [None]
  - Pruritus [None]
  - Rhinorrhoea [None]
  - Oropharyngeal pain [None]

NARRATIVE: CASE EVENT DATE: 20160307
